FAERS Safety Report 16674303 (Version 1)
Quarter: 2019Q3

REPORT INFORMATION
  Report Type: Report from Study
  Country: RU (occurrence: RU)
  Receive Date: 20190806
  Receipt Date: 20190806
  Transmission Date: 20191004
  Serious: Yes (Hospitalization)
  Sender: FDA-Public Use
  Company Number: RU-ASTRAZENECA-2019SF09860

PATIENT
  Age: 59 Year
  Sex: Female
  Weight: 75 kg

DRUGS (4)
  1. BRILINTA [Suspect]
     Active Substance: TICAGRELOR
     Indication: STENT PLACEMENT
     Route: 048
     Dates: start: 201811
  2. BISOPROLOL [Concomitant]
     Active Substance: BISOPROLOL
  3. THROMBO ASS [Concomitant]
     Active Substance: ASPIRIN
  4. BRILINTA [Suspect]
     Active Substance: TICAGRELOR
     Indication: MYOCARDIAL INFARCTION
     Route: 048
     Dates: start: 201811

REACTIONS (3)
  - Dyspnoea [Unknown]
  - Vascular stent occlusion [Unknown]
  - Chest pain [Unknown]
